FAERS Safety Report 6006704-1 (Version None)
Quarter: 2008Q4

REPORT INFORMATION
  Report Type: 
  Country: None (occurrence: None)
  Receive Date: 20081217
  Receipt Date: 20081205
  Transmission Date: 20090506
  Serious: Yes (Other)
  Sender: FDA-Public Use
  Company Number: KR-AVENTIS-200821595GDDC

PATIENT
  Age: 70 Year
  Sex: Male

DRUGS (3)
  1. AMARYL [Suspect]
     Indication: DIABETES MELLITUS
     Route: 048
  2. METFORMIN HCL [Concomitant]
     Indication: DIABETES MELLITUS
     Route: 048
  3. PIOGLITAZONE [Concomitant]
     Indication: DIABETES MELLITUS
     Route: 048

REACTIONS (1)
  - ASCITES [None]
